FAERS Safety Report 8589376-1 (Version None)
Quarter: 2012Q3

REPORT INFORMATION
  Report Type: 
  Country: None (occurrence: None)
  Receive Date: 20120813
  Receipt Date: 20120808
  Transmission Date: 20120928
  Serious: Yes (Other)
  Sender: FDA-Public Use
  Company Number: PHHY2012BR069309

PATIENT
  Sex: Female

DRUGS (3)
  1. FORMOTEROL FUMARATE [Concomitant]
     Indication: ASTHMA
     Dosage: 1 INHALATION OF EACH TREATMENT IN THE MORNING AND NIGHT
  2. ALBUTEROL [Concomitant]
     Dosage: 100 UG, UNK
  3. AMLODOPINE BESYLATE AND VALSARTAN [Suspect]
     Indication: HYPERTENSION
     Dosage: 1 TABLET IN THE MORNING AND NIGHT
     Route: 048

REACTIONS (8)
  - MICTURITION URGENCY [None]
  - POST PROCEDURAL COMPLICATION [None]
  - RETINAL DETACHMENT [None]
  - SUTURE RUPTURE [None]
  - ABDOMINAL DISCOMFORT [None]
  - VISUAL ACUITY REDUCED [None]
  - OEDEMA PERIPHERAL [None]
  - ERYTHEMA [None]
